FAERS Safety Report 8935113 (Version 1)
Quarter: 2012Q4

REPORT INFORMATION
  Report Type: 
  Country: US (occurrence: US)
  Receive Date: 20121129
  Receipt Date: 20121129
  Transmission Date: 20130627
  Serious: No
  Sender: FDA-Public Use
  Company Number: US-009507513-1211USA012259

PATIENT
  Age: 9 Year
  Sex: Male
  Weight: 43.84 kg

DRUGS (2)
  1. CLARITIN [Suspect]
     Indication: SEASONAL ALLERGY
     Dosage: 10 mg, qd
     Route: 048
  2. CLARITIN [Suspect]
     Dosage: 10 mg, bid
     Route: 048
     Dates: start: 20121013

REACTIONS (2)
  - Somnolence [Recovering/Resolving]
  - Overdose [Unknown]
